FAERS Safety Report 7726210-3 (Version None)
Quarter: 2011Q3

REPORT INFORMATION
  Report Type: 
  Country: None (occurrence: None)
  Receive Date: 20110902
  Receipt Date: 20110822
  Transmission Date: 20111222
  Serious: Yes (Hospitalization, Other)
  Sender: FDA-Public Use
  Company Number: US-JNJFOC-20110610549

PATIENT
  Sex: Male
  Weight: 129.25 kg

DRUGS (7)
  1. TENORMIN [Concomitant]
  2. IBUPROFEN [Suspect]
     Indication: PAIN
     Route: 048
  3. TOPAMAX [Suspect]
     Indication: HEADACHE
  4. TOPAMAX [Suspect]
     Indication: MIGRAINE
  5. SERTRALINE HYDROCHLORIDE [Suspect]
     Indication: DEPRESSION
     Route: 048
     Dates: start: 20060101
  6. PERCOCET [Concomitant]
  7. XANAX [Concomitant]

REACTIONS (12)
  - HYPOAESTHESIA [None]
  - MOOD ALTERED [None]
  - EMOTIONAL DISORDER [None]
  - HEADACHE [None]
  - GASTRIC PERFORATION [None]
  - NEPHROLITHIASIS [None]
  - KIDNEY INFECTION [None]
  - CALCULUS URETERIC [None]
  - SEPSIS [None]
  - NECK PAIN [None]
  - NIGHTMARE [None]
  - SPINAL DISORDER [None]
